FAERS Safety Report 19671864 (Version 6)
Quarter: 2024Q3

REPORT INFORMATION
  Report Type: Spontaneous
  Country: US (occurrence: US)
  Receive Date: 20210806
  Receipt Date: 20240815
  Transmission Date: 20241017
  Serious: Yes (Hospitalization)
  Sender: NEUROCRINE BIOSCIENCES
  Company Number: US-NEUROCRINE BIOSCIENCES INC.-2021NBI04175

PATIENT
  Age: 73 Year
  Sex: Female

DRUGS (11)
  1. INGREZZA [Suspect]
     Active Substance: VALBENAZINE
     Indication: Tardive dyskinesia
     Dosage: 40 MILLIGRAM
     Route: 065
     Dates: start: 20220118
  2. INGREZZA [Suspect]
     Active Substance: VALBENAZINE
     Dosage: 60 MILLIGRAM
     Route: 065
  3. INGREZZA [Suspect]
     Active Substance: VALBENAZINE
     Dosage: 80 MILLIGRAM, QD
     Route: 048
     Dates: start: 202402
  4. INGREZZA [Suspect]
     Active Substance: VALBENAZINE
     Dosage: 40 MILLIGRAM, QD
     Route: 048
     Dates: start: 20220118
  5. INGREZZA [Suspect]
     Active Substance: VALBENAZINE
     Dosage: 40 MILLIGRAM, QD
     Route: 048
     Dates: start: 202110
  6. INGREZZA [Suspect]
     Active Substance: VALBENAZINE
     Dosage: UNK
     Route: 065
     Dates: start: 202106, end: 202110
  7. INGREZZA [Suspect]
     Active Substance: VALBENAZINE
     Dosage: 80 MILLIGRAM
     Route: 065
     Dates: start: 20180801, end: 202103
  8. TRINTELLIX [Concomitant]
     Active Substance: VORTIOXETINE HYDROBROMIDE
     Indication: Depression
     Dosage: 40 MILLIGRAM
     Route: 048
     Dates: start: 20211005
  9. LITHIUM CARBONATE [Concomitant]
     Active Substance: LITHIUM CARBONATE
     Indication: Bipolar I disorder
     Dosage: 300 MILLIGRAM, BID (SINCE PRE-2018)
     Route: 048
  10. SYNTHROID [Concomitant]
     Active Substance: LEVOTHYROXINE SODIUM
     Indication: Hypothyroidism
     Dosage: 175 MICROGRAM, (SINCE PRE-2018)
     Route: 048
     Dates: start: 2018
  11. COGENTIN [Concomitant]
     Active Substance: BENZTROPINE MESYLATE

REACTIONS (5)
  - Limb fracture [Recovered/Resolved]
  - Grimacing [Recovered/Resolved]
  - Ataxia [Recovering/Resolving]
  - Fall [Unknown]
  - Parkinsonism [Recovered/Resolved]

NARRATIVE: CASE EVENT DATE: 20210301
